FAERS Safety Report 4498115-5 (Version None)
Quarter: 2004Q4

REPORT INFORMATION
  Report Type: 
  Country: None (occurrence: None)
  Receive Date: 20040927
  Receipt Date: 20040608
  Transmission Date: 20050328
  Serious: No
  Sender: FDA-Public Use
  Company Number: USA040669641

PATIENT
  Age: 33 Year
  Sex: Male
  Weight: 81 kg

DRUGS (2)
  1. STRATTERA [Suspect]
     Dosage: 50 MG DAY
     Dates: start: 20040606
  2. VITAMINS NOS [Concomitant]

REACTIONS (1)
  - ACCIDENTAL OVERDOSE [None]
